FAERS Safety Report 25936978 (Version 2)
Quarter: 2025Q4

REPORT INFORMATION
  Report Type: Spontaneous
  Country: US (occurrence: US)
  Receive Date: 20251017
  Receipt Date: 20251114
  Transmission Date: 20260118
  Serious: Yes (Other)
  Sender: NOVO NORDISK
  Company Number: US-NOVOPROD-1536674

PATIENT
  Age: 56 Year
  Sex: Male

DRUGS (3)
  1. LEVEMIR [Suspect]
     Active Substance: INSULIN DETEMIR
     Indication: Diabetes mellitus
     Dosage: UNK
     Route: 058
     Dates: start: 2006
  2. LEVEMIR [Suspect]
     Active Substance: INSULIN DETEMIR
     Dosage: 42 IU, QD (RIGHT BEFORE BED)
     Route: 058
  3. LEVEMIR [Suspect]
     Active Substance: INSULIN DETEMIR
     Dosage: 64 IU
     Route: 058

REACTIONS (3)
  - Chronic myeloid leukaemia [Recovering/Resolving]
  - Weight abnormal [Unknown]
  - Osteoarthritis [Unknown]

NARRATIVE: CASE EVENT DATE: 20100101
